FAERS Safety Report 18151454 (Version 1)
Quarter: 2020Q3

REPORT INFORMATION
  Report Type: Spontaneous
  Country: CA (occurrence: CA)
  Receive Date: 20200814
  Receipt Date: 20200814
  Transmission Date: 20201103
  Serious: Yes (Death, Hospitalization, Other)
  Sender: FDA-Public Use
  Company Number: CA-PFIZER INC-2020182738

PATIENT
  Age: 77 Year
  Sex: Female

DRUGS (3)
  1. KEYTRUDA [Concomitant]
     Active Substance: PEMBROLIZUMAB
     Dosage: UNK
  2. INLYTA [Suspect]
     Active Substance: AXITINIB
     Indication: RENAL CELL CARCINOMA
     Dosage: 5 MG, 2X/DAY
     Dates: start: 20200514, end: 20200514
  3. INLYTA [Suspect]
     Active Substance: AXITINIB
     Dosage: 2 DF (TABLET OF 1 MG), 2X/DAY
     Route: 048
     Dates: start: 2020, end: 2020

REACTIONS (5)
  - Off label use [Unknown]
  - Cerebrovascular accident [Unknown]
  - Neoplasm progression [Unknown]
  - Death [Fatal]
  - Product use in unapproved indication [Unknown]

NARRATIVE: CASE EVENT DATE: 2020
